FAERS Safety Report 9692786 (Version 1)
Quarter: 2013Q4

REPORT INFORMATION
  Report Type: Spontaneous
  Country: US (occurrence: None)
  Receive Date: 20131115
  Receipt Date: 20131115
  Transmission Date: 20140711
  Serious: No
  Sender: FDA-Public Use
  Company Number: None

PATIENT
  Age: 81 Year
  Sex: Male

DRUGS (14)
  1. TARCEVA [Suspect]
     Indication: LUNG NEOPLASM MALIGNANT
     Route: 048
     Dates: start: 20131025, end: 20131114
  2. ATENOLOL [Concomitant]
  3. SIMVASTATIN [Concomitant]
  4. LEVOTHYROXINE [Concomitant]
  5. TAMSULOSIN [Concomitant]
  6. FINASTERIDE ALLOPURINOL [Concomitant]
  7. COLCRYS [Concomitant]
  8. ASA [Concomitant]
  9. XANAX [Concomitant]
  10. PRILOSEC [Concomitant]
  11. PREDNISONE [Concomitant]
  12. NEXIUM [Concomitant]
  13. MEGESTROL [Concomitant]
  14. LORTAB [Concomitant]

REACTIONS (1)
  - Diarrhoea [None]
